FAERS Safety Report 20661454 (Version 2)
Quarter: 2022Q2

REPORT INFORMATION
  Report Type: Spontaneous
  Country: ES (occurrence: ES)
  Receive Date: 20220401
  Receipt Date: 20220419
  Transmission Date: 20220721
  Serious: Yes (Hospitalization)
  Sender: FDA-Public Use
  Company Number: ES-NOVOPROD-898698

PATIENT
  Age: 12 Year
  Sex: Female
  Weight: 76 kg

DRUGS (4)
  1. NOVORAPID [Suspect]
     Active Substance: INSULIN ASPART
     Dosage: UNK (CARTRIDGE REPLACED)
     Route: 058
  2. NOVORAPID [Suspect]
     Active Substance: INSULIN ASPART
     Indication: Type 1 diabetes mellitus
     Dosage: 60 IU, QD
     Route: 058
  3. NOVORAPID [Suspect]
     Active Substance: INSULIN ASPART
     Dosage: UNK (3RD CARTRIDGE)
     Route: 058
  4. NOVORAPID [Suspect]
     Active Substance: INSULIN ASPART
     Dosage: UNK (2 ND CARTRIDGE)
     Route: 058

REACTIONS (1)
  - Diabetic ketoacidosis [Recovered/Resolved]

NARRATIVE: CASE EVENT DATE: 20220303
